FAERS Safety Report 6079545-7 (Version None)
Quarter: 2009Q1

REPORT INFORMATION
  Report Type: 
  Country: None (occurrence: None)
  Receive Date: 20090217
  Receipt Date: 20090206
  Transmission Date: 20090719
  Serious: Yes (Other)
  Sender: FDA-Public Use
  Company Number: PHHY2009JP00559

PATIENT
  Weight: 49 kg

DRUGS (6)
  1. ZOMETA [Suspect]
     Indication: METASTASES TO BONE
     Dosage: 4 MG, QMO
     Route: 042
     Dates: start: 20070201, end: 20080703
  2. ADALAT CC [Concomitant]
     Indication: HYPERTENSION
     Dosage: 30 MG
     Route: 048
     Dates: start: 20071106
  3. TENORMIN [Concomitant]
     Indication: HYPERTENSION
     Dosage: 25 MG
     Route: 048
     Dates: start: 20071106
  4. KETOPROFEN [Concomitant]
     Indication: MYALGIA
     Dosage: UNK
     Route: 061
     Dates: start: 20080410
  5. CARBOPLATIN [Concomitant]
  6. ETOPOSIDE [Concomitant]

REACTIONS (5)
  - DEBRIDEMENT [None]
  - OSTEOMYELITIS [None]
  - PURULENT DISCHARGE [None]
  - SURGERY [None]
  - TOOTH EXTRACTION [None]
